FAERS Safety Report 8255668-9 (Version None)
Quarter: 2012Q2

REPORT INFORMATION
  Report Type: 
  Country: None (occurrence: None)
  Receive Date: 20120403
  Receipt Date: 20120327
  Transmission Date: 20120825
  Serious: Yes (Hospitalization)
  Sender: FDA-Public Use
  Company Number: FR-ABBOTT-12P-056-0919047-00

PATIENT
  Age: 36 Year
  Sex: Female

DRUGS (4)
  1. IMURAN [Suspect]
     Indication: CROHN'S DISEASE
     Route: 048
     Dates: start: 20031101
  2. RIFADIN [Suspect]
     Indication: PRODUCT USED FOR UNKNOWN INDICATION
     Route: 048
     Dates: start: 20101229
  3. HUMIRA [Suspect]
     Indication: CROHN'S DISEASE
     Route: 058
     Dates: start: 20101229
  4. PREDNISOLONE [Suspect]
     Indication: CROHN'S DISEASE
     Route: 048
     Dates: start: 20031101

REACTIONS (1)
  - STRESS CARDIOMYOPATHY [None]
